FAERS Safety Report 20761804 (Version 1)
Quarter: 2022Q2

REPORT INFORMATION
  Report Type: Spontaneous
  Country: NL (occurrence: NL)
  Receive Date: 20220428
  Receipt Date: 20220428
  Transmission Date: 20220721
  Serious: Yes (Other)
  Sender: FDA-Public Use
  Company Number: NL-ABBVIE-22K-114-4352003-00

PATIENT
  Age: 62 Year
  Sex: Male

DRUGS (3)
  1. AZITHROMYCIN [Suspect]
     Active Substance: AZITHROMYCIN
     Indication: Arthritis reactive
     Dosage: UNK
     Route: 065
  2. PREDNISONE [Suspect]
     Active Substance: PREDNISONE
     Indication: Cogan^s syndrome
     Dosage: UNK
     Route: 048
  3. HUMIRA [Suspect]
     Active Substance: ADALIMUMAB
     Indication: Product used for unknown indication
     Dosage: UNK
     Route: 058

REACTIONS (17)
  - Testicular swelling [Unknown]
  - Viral infection [Unknown]
  - Cogan^s syndrome [Unknown]
  - Keratitis interstitial [Unknown]
  - Inflammation [Unknown]
  - Aortitis [Unknown]
  - Pyrexia [Recovered/Resolved]
  - Vasculitis [Unknown]
  - Arthralgia [Unknown]
  - Night sweats [Unknown]
  - Chlamydial infection [Unknown]
  - Conjunctivitis [Unknown]
  - Malaise [Not Recovered/Not Resolved]
  - Testicular pain [Unknown]
  - Ear, nose and throat disorder [Unknown]
  - Neoplasm malignant [Unknown]
  - Weight decreased [Unknown]
